FAERS Safety Report 5646591-4 (Version None)
Quarter: 2008Q1

REPORT INFORMATION
  Report Type: 
  Country: None (occurrence: None)
  Receive Date: 20080303
  Receipt Date: 20080220
  Transmission Date: 20080703
  Serious: Yes (Other)
  Sender: FDA-Public Use
  Company Number: PHBS2008US02781

PATIENT
  Age: 12 Year
  Sex: Female

DRUGS (7)
  1. TACROLIMUS [Concomitant]
  2. METHYLPREDNISOLONE [Concomitant]
     Dosage: 60 MG/DAY
  3. PENTAMIDINE ISETHIONATE [Concomitant]
  4. AMPHOTERICIN B [Concomitant]
  5. ACYCLOVIR [Concomitant]
  6. ESCITALOPRAM OXALATE [Concomitant]
  7. MYCOPHENOLATE MOFETIL [Suspect]
     Indication: STEM CELL TRANSPLANT

REACTIONS (12)
  - ALANINE AMINOTRANSFERASE INCREASED [None]
  - ASPARTATE AMINOTRANSFERASE INCREASED [None]
  - BILIRUBIN CONJUGATED INCREASED [None]
  - BLOOD ALBUMIN DECREASED [None]
  - BLOOD BILIRUBIN INCREASED [None]
  - BLOOD CHOLESTEROL INCREASED [None]
  - BLOOD TRIGLYCERIDES INCREASED [None]
  - CHRONIC GRAFT VERSUS HOST DISEASE [None]
  - GAMMA-GLUTAMYLTRANSFERASE INCREASED [None]
  - HYPERCHOLESTEROLAEMIA [None]
  - LIPIDS INCREASED [None]
  - PROTEIN TOTAL DECREASED [None]
